FAERS Safety Report 17450697 (Version 1)
Quarter: 2020Q1

REPORT INFORMATION
  Report Type: Spontaneous
  Country: US (occurrence: US)
  Receive Date: 20200131
  Receipt Date: 20200131
  Transmission Date: 20200409
  Serious: Yes (Life-Threatening)
  Sender: FDA-Public Use
  Company Number: None

PATIENT
  Age: 15 Month
  Sex: Female
  Weight: 13.8 kg

DRUGS (2)
  1. ACETAMINOPHEN 160MG/5ML [Suspect]
     Active Substance: ACETAMINOPHEN
     Indication: PAIN
     Route: 048
     Dates: start: 20200123
  2. ACETAMINOPHEN 160MG/5ML [Suspect]
     Active Substance: ACETAMINOPHEN
     Indication: PYREXIA

REACTIONS (1)
  - Drug level increased [None]

NARRATIVE: CASE EVENT DATE: 20200127
